FAERS Safety Report 23821128 (Version 3)
Quarter: 2024Q3

REPORT INFORMATION
  Report Type: Spontaneous
  Country: US (occurrence: US)
  Receive Date: 20240506
  Receipt Date: 20240913
  Transmission Date: 20241017
  Serious: No
  Sender: PFIZER
  Company Number: US-PFIZER INC-202400098842

PATIENT
  Age: 12 Year
  Sex: Female
  Weight: 35.38 kg

DRUGS (2)
  1. GENOTROPIN [Suspect]
     Active Substance: SOMATROPIN
     Indication: Turner^s syndrome
     Dosage: 1.8 SIX DAYS A WEEK USING THE PEN ROTATE BETWEEN ARMS AND LEGS
     Dates: start: 20240312
  2. GENOTROPIN [Suspect]
     Active Substance: SOMATROPIN
     Dosage: 1.8 SIX DAYS A WEEK USING THE PEN ROTATE BETWEEN ARMS AND LEGS

REACTIONS (6)
  - Drug dose omission by device [Unknown]
  - Device delivery system issue [Unknown]
  - Device information output issue [Unknown]
  - Device breakage [Unknown]
  - Poor quality device used [Unknown]
  - Product odour abnormal [Unknown]
